FAERS Safety Report 12001110 (Version 1)
Quarter: 2016Q1

REPORT INFORMATION
  Report Type: Spontaneous
  Country: FR (occurrence: FR)
  Receive Date: 20160204
  Receipt Date: 20160204
  Transmission Date: 20160526
  Serious: Yes (Other)
  Sender: FDA-Public Use
  Company Number: FR-ASTRAZENECA-2016SE10522

PATIENT
  Age: 803 Month
  Sex: Female

DRUGS (2)
  1. FASLODEX [Suspect]
     Active Substance: FULVESTRANT
     Indication: BREAST CANCER METASTATIC
     Dosage: D0: 500 MG, D14: 500 MG AND D28: 500 MG, AND THEN 500 MG PER MONTH
     Route: 030
     Dates: start: 201505
  2. PREVISCAN [Concomitant]
     Active Substance: FLUINDIONE

REACTIONS (3)
  - Muscular weakness [Not Recovered/Not Resolved]
  - Disease progression [Unknown]
  - Fatigue [Not Recovered/Not Resolved]

NARRATIVE: CASE EVENT DATE: 201505
